FAERS Safety Report 8431663-1 (Version None)
Quarter: 2012Q2

REPORT INFORMATION
  Report Type: 
  Country: None (occurrence: None)
  Receive Date: 20120613
  Receipt Date: 20120531
  Transmission Date: 20120825
  Serious: Yes (Hospitalization, Other)
  Sender: FDA-Public Use
  Company Number: US-ELI_LILLY_AND_COMPANY-US201206000705

PATIENT
  Age: 59 Year
  Sex: Female

DRUGS (1)
  1. ZYPREXA RELPREVV [Suspect]
     Dosage: 300 MG, 2/W

REACTIONS (5)
  - HYPONATRAEMIA [None]
  - PSYCHOTIC DISORDER [None]
  - INTESTINAL OBSTRUCTION [None]
  - AGITATION [None]
  - VOMITING [None]
